FAERS Safety Report 5734951-2 (Version None)
Quarter: 2008Q2

REPORT INFORMATION
  Report Type: 
  Country: None (occurrence: None)
  Receive Date: 20080502
  Receipt Date: 20080110
  Transmission Date: 20081010
  Serious: Yes (Hospitalization)
  Sender: FDA-Public Use
  Company Number: US022082

PATIENT
  Sex: Female

DRUGS (2)
  1. FENTORA [Suspect]
     Indication: PAIN
     Dosage: BUCCAL
     Route: 002
     Dates: start: 20070101, end: 20070501
  2. FENTORA [Suspect]
     Indication: RHEUMATOID ARTHRITIS
     Dosage: BUCCAL
     Route: 002
     Dates: start: 20070101, end: 20070501

REACTIONS (3)
  - DEHYDRATION [None]
  - PAIN [None]
  - VOMITING [None]
